FAERS Safety Report 8231247-4 (Version None)
Quarter: 2012Q1

REPORT INFORMATION
  Report Type: 
  Country: None (occurrence: None)
  Receive Date: 20120323
  Receipt Date: 20120316
  Transmission Date: 20120608
  Serious: Yes (Death, Hospitalization)
  Sender: FDA-Public Use
  Company Number: CA-CELGENEUS-028-C5013-12011266

PATIENT
  Sex: Male
  Weight: 57.2 kg

DRUGS (73)
  1. DILAUDID [Concomitant]
     Indication: PAIN
     Dosage: 1 MILLIGRAM
     Route: 048
     Dates: start: 20110901, end: 20120118
  2. GRAVOL TAB [Concomitant]
     Indication: NAUSEA
     Dosage: 50 MILLIGRAM
     Route: 041
     Dates: start: 20120110, end: 20120118
  3. LASIX [Concomitant]
     Indication: OEDEMA
     Dosage: 20 MILLIGRAM
     Route: 041
     Dates: start: 20120114, end: 20120114
  4. SODIUM CHLORIDE [Concomitant]
     Dosage: 50 MILLILITER
     Route: 040
     Dates: start: 20120112, end: 20120113
  5. SCOPOLAMINE [Concomitant]
     Dosage: .6 MILLIGRAM
     Route: 065
     Dates: start: 20120119
  6. PROCHLORPERAZINE [Concomitant]
     Indication: NAUSEA
     Route: 065
  7. NIASPAN [Concomitant]
     Dosage: 500 MILLIGRAM
     Route: 048
     Dates: start: 20050101, end: 20120110
  8. VENTOLIN [Concomitant]
     Dosage: 4
     Route: 055
     Dates: start: 20120112
  9. LYRICA [Concomitant]
     Dosage: 25 MILLIGRAM
     Route: 048
     Dates: end: 20111021
  10. PRILOSEC [Concomitant]
     Dosage: 20 MILLIGRAM
     Route: 048
     Dates: start: 20050101, end: 20120110
  11. SYNTHROID [Concomitant]
     Dosage: .075 MILLIGRAM
     Route: 048
     Dates: start: 20110624, end: 20110720
  12. TRAVOPROST AND TIMOLOL [Concomitant]
     Indication: GLAUCOMA
     Route: 047
     Dates: start: 20070101, end: 20120110
  13. ALENDRONATE SODIUM [Concomitant]
     Route: 048
  14. ATROVENT [Concomitant]
     Dosage: 4
     Route: 055
     Dates: start: 20120112
  15. HEPARIN [Concomitant]
     Indication: DYSPEPSIA
     Dosage: 5000
     Route: 058
     Dates: start: 20120112, end: 20120113
  16. BENADRYL [Concomitant]
     Dosage: 50 MILLIGRAM
     Route: 041
     Dates: start: 20120111, end: 20120111
  17. LENALIDOMIDE [Suspect]
     Dosage: 25 MILLIGRAM
     Route: 048
     Dates: start: 20111222, end: 20120110
  18. SYNTHROID [Concomitant]
     Dosage: .1 MILLIGRAM
     Route: 048
     Dates: start: 20110721, end: 20120118
  19. POTASSIUM CHLORIDE [Concomitant]
     Dosage: 20 MICROGRAM
     Route: 048
     Dates: start: 20120113, end: 20120113
  20. TYLENOL [Concomitant]
     Dosage: 650 MILLIGRAM
     Route: 048
     Dates: start: 20120112, end: 20120118
  21. SODIUM CHLORIDE [Concomitant]
     Indication: HYPOTENSION
     Dosage: 120 MILLILITER
     Route: 040
     Dates: start: 20120110, end: 20120111
  22. SODIUM CHLORIDE [Concomitant]
     Indication: FLUID REPLACEMENT
     Dosage: 40 CC
     Route: 040
     Dates: start: 20120111, end: 20120112
  23. SODIUM CHLORIDE [Concomitant]
     Dosage: 500 MILLILITER
     Route: 040
     Dates: start: 20120113, end: 20120117
  24. ZOVIRAX [Concomitant]
     Route: 065
     Dates: start: 20101228, end: 20110112
  25. SODIUM CHLORIDE [Concomitant]
     Indication: HYPOTENSION
     Dosage: 1 LITERS
     Route: 040
     Dates: start: 20120117, end: 20120117
  26. XALATAN [Concomitant]
     Indication: GLAUCOMA
     Dosage: 1 DROPS
     Route: 058
     Dates: start: 20120112, end: 20120118
  27. VITAMIN D [Concomitant]
     Indication: MULTIPLE FRACTURES
     Dosage: 20
     Route: 065
     Dates: start: 20101007, end: 20101013
  28. LENALIDOMIDE [Suspect]
     Indication: MULTIPLE MYELOMA
     Dosage: 25 MILLIGRAM
     Route: 048
     Dates: start: 20101104
  29. DEXAMETHASONE [Suspect]
     Indication: MULTIPLE MYELOMA
     Dosage: 20 MILLIGRAM
     Route: 065
     Dates: start: 20101104
  30. CALCIUM GLUCONATE [Concomitant]
     Dosage: 500 MILLIGRAM
     Route: 048
     Dates: start: 20120112, end: 20120113
  31. SODIUM CHLORIDE [Concomitant]
     Dosage: 500 MILLILITER
     Route: 040
     Dates: start: 20120117, end: 20120117
  32. PEPCID [Concomitant]
     Indication: DYSPEPSIA
     Dosage: 20 MILLIGRAM
     Route: 041
     Dates: start: 20120112, end: 20120114
  33. HEPARIN [Concomitant]
     Dosage: 5000
     Route: 058
     Dates: start: 20120113, end: 20120114
  34. MUCOMYST [Concomitant]
     Indication: PREMEDICATION
     Dosage: 600 MILLIGRAM
     Route: 048
     Dates: start: 20120114, end: 20120115
  35. PNEUMOVAX 23 [Concomitant]
     Indication: INFECTION PROPHYLAXIS
     Dosage: .5 MILLILITER
     Route: 065
     Dates: start: 20101104, end: 20101104
  36. DEXAMETHASONE [Suspect]
     Dosage: 12 MILLIGRAM
     Route: 065
     Dates: start: 20111222, end: 20120110
  37. PRILOSEC [Concomitant]
  38. DILAUDID [Concomitant]
     Dosage: .5 MILLIGRAM
     Route: 058
     Dates: start: 20120119, end: 20120121
  39. INHALER [Concomitant]
     Route: 055
  40. EURO-D [Concomitant]
     Dosage: 400 U
     Route: 048
     Dates: start: 20080101, end: 20120118
  41. LOVENOX [Concomitant]
     Dosage: 40
     Route: 058
     Dates: start: 20120114, end: 20120118
  42. VERSED [Concomitant]
     Dosage: 25 MILLIGRAM
     Route: 065
     Dates: start: 20120121
  43. CRESTOR [Concomitant]
     Dosage: 2.5 MILLIGRAM
     Route: 048
     Dates: start: 20120112, end: 20120118
  44. AMLODIPINE [Concomitant]
     Indication: HYPERTENSION
     Dosage: 5 MILLIGRAM
     Route: 048
     Dates: start: 20050101, end: 20120110
  45. PRAVASTATIN [Concomitant]
  46. DILAUDID [Concomitant]
     Dosage: 10 MILLIGRAM
     Route: 040
     Dates: start: 20120121
  47. TYLENOL [Concomitant]
     Dosage: 500MG, 1-2
     Route: 048
     Dates: end: 20120118
  48. SODIUM CHLORIDE [Concomitant]
     Dosage: 180 CC
     Route: 040
     Dates: start: 20120117, end: 20120118
  49. ENSURE [Concomitant]
     Route: 065
     Dates: start: 20110201
  50. ALENDRONATE SODIUM [Concomitant]
     Indication: OSTEOPOROSIS
     Dosage: 70 MILLIGRAM
     Route: 048
  51. FLEXERIL [Concomitant]
     Route: 065
  52. TIMOLOL MALEATE [Concomitant]
     Indication: GLAUCOMA
     Dosage: 1 DROPS
     Route: 041
     Dates: start: 20120112, end: 20120118
  53. PANTOPRAZOLE SODIUM [Concomitant]
     Dosage: 40 MILLIGRAM
     Route: 048
     Dates: start: 20120111, end: 20120118
  54. ASPIRIN [Concomitant]
     Indication: HYPERTENSION
     Dosage: 80 MILLIGRAM
     Route: 048
     Dates: start: 20050101, end: 20120118
  55. PRAVASTATIN [Concomitant]
     Indication: HYPERTENSION
     Dosage: 40 MILLIGRAM
     Route: 048
     Dates: start: 20050101
  56. SYNTHROID [Concomitant]
     Indication: HYPOTHYROIDISM
     Dosage: .5 MILLIGRAM
     Route: 048
     Dates: start: 20110527, end: 20110623
  57. HYDROMORPHONE HCL [Concomitant]
     Indication: PAIN
     Dosage: 6 MILLIGRAM
     Route: 048
     Dates: start: 20110224, end: 20120121
  58. MAGNESIUM SULFATE [Concomitant]
     Route: 041
     Dates: start: 20120101
  59. ANUSOL [Concomitant]
     Route: 065
     Dates: start: 20120115, end: 20120118
  60. LEVOPHED [Concomitant]
     Indication: HYPOTENSION
     Dosage: 4 MILLIGRAM
     Route: 041
     Dates: start: 20120112, end: 20120114
  61. SENOKOT [Concomitant]
     Indication: CONSTIPATION
     Route: 048
     Dates: end: 20120110
  62. POTASSIUM CHLORIDE [Concomitant]
     Dosage: 20 MILLIEQUIVALENTS
     Route: 048
     Dates: start: 20120114, end: 20120116
  63. COLACE [Concomitant]
     Indication: CONSTIPATION
     Dosage: 100-200MG
     Route: 048
     Dates: start: 20100526, end: 20120110
  64. POTASSIUM PHOSPHATES [Concomitant]
     Route: 041
     Dates: start: 20120114, end: 20120114
  65. LASIX [Concomitant]
     Dosage: 20 MILLIGRAM
     Route: 048
     Dates: start: 20120114, end: 20120117
  66. CALCIUM CARBONATE [Concomitant]
     Route: 065
     Dates: start: 20120101
  67. SERAX [Concomitant]
     Indication: INSOMNIA
     Dosage: 15 MILLIGRAM
     Route: 048
     Dates: start: 20120111, end: 20120118
  68. EURO-D [Concomitant]
     Indication: OSTEOPOROSIS
  69. LACTULOSE [Concomitant]
     Indication: CONSTIPATION
     Route: 065
  70. SOLU-CORTEF [Concomitant]
     Dosage: 50 MILLIGRAM
     Route: 041
     Dates: start: 20120113, end: 20120118
  71. SOLU-CORTEF [Concomitant]
     Indication: INFECTION
     Route: 041
  72. NORMAL SALINE W/ KCL [Concomitant]
     Dosage: 80 CC
     Route: 040
     Dates: start: 20120113, end: 20120115
  73. FLU VACCINE [Concomitant]
     Dosage: .5 MILLILITER
     Route: 065
     Dates: start: 20101104, end: 20101104

REACTIONS (2)
  - PNEUMONIA [None]
  - FEBRILE NEUTROPENIA [None]
